FAERS Safety Report 25435009 (Version 2)
Quarter: 2025Q3

REPORT INFORMATION
  Report Type: Report from Study
  Country: GB (occurrence: GB)
  Receive Date: 20250613
  Receipt Date: 20250913
  Transmission Date: 20251020
  Serious: Yes (Other)
  Sender: JOHNSON AND JOHNSON
  Company Number: GB-JNJFOC-20250614897

PATIENT
  Sex: Male

DRUGS (1)
  1. SIMPONI [Suspect]
     Active Substance: GOLIMUMAB
     Indication: Ankylosing spondylitis
     Dosage: FORM STRENGTH: 50MG/0.5ML
     Route: 058

REACTIONS (3)
  - Nephrolithiasis [Unknown]
  - Abscess [Unknown]
  - Urinary tract infection [Unknown]
